FAERS Safety Report 5034452-3 (Version None)
Quarter: 2006Q2

REPORT INFORMATION
  Report Type: 
  Country: None (occurrence: None)
  Receive Date: 20060620
  Receipt Date: 20060611
  Transmission Date: 20061013
  Serious: Yes (Death)
  Sender: FDA-Public Use
  Company Number: DIB-2006-001

PATIENT
  Age: 57 Year
  Sex: Male

DRUGS (1)
  1. PHENOXYBENZAMINE [Suspect]
     Indication: URINARY RETENTION
     Dosage: 10 MG MOR. 20 MG NT. ORAL
     Route: 048
     Dates: start: 19750101, end: 19820101

REACTIONS (6)
  - AZOTAEMIA [None]
  - BLADDER CANCER [None]
  - CHRONIC LYMPHOCYTIC LEUKAEMIA [None]
  - DIZZINESS [None]
  - DYSPLASIA [None]
  - HYDRONEPHROSIS [None]
